FAERS Safety Report 16201549 (Version 1)
Quarter: 2019Q2

REPORT INFORMATION
  Report Type: Spontaneous
  Country: US (occurrence: US)
  Receive Date: 20190415
  Receipt Date: 20190415
  Transmission Date: 20190711
  Serious: Yes (Other)
  Sender: FDA-Public Use
  Company Number: None

PATIENT
  Age: 79 Year
  Sex: Female
  Weight: 79.2 kg

DRUGS (5)
  1. SPIRONOLACTONE. [Concomitant]
     Active Substance: SPIRONOLACTONE
  2. PANTOPRAZOLE [Concomitant]
     Active Substance: PANTOPRAZOLE
  3. METOPROLOL SUCCINATE. [Concomitant]
     Active Substance: METOPROLOL SUCCINATE
  4. LISINOPRIL. [Concomitant]
     Active Substance: LISINOPRIL
  5. CAPECITABINE. [Suspect]
     Active Substance: CAPECITABINE
     Indication: COLON NEOPLASM
     Route: 048
     Dates: start: 20190327

REACTIONS (1)
  - Death [None]
